FAERS Safety Report 10518571 (Version 1)
Quarter: 2014Q4

REPORT INFORMATION
  Report Type: Spontaneous
  Country: GB (occurrence: GB)
  Receive Date: 20141015
  Receipt Date: 20141015
  Transmission Date: 20150528
  Serious: Yes (Other)
  Sender: FDA-Public Use
  Company Number: GB-LEO PHARMA-221986

PATIENT
  Age: 70 Year
  Sex: Female
  Weight: 69 kg

DRUGS (2)
  1. PICATO [Suspect]
     Active Substance: INGENOL MEBUTATE
     Indication: ACTINIC KERATOSIS
     Route: 061
     Dates: start: 20130520
  2. PICATO [Suspect]
     Active Substance: INGENOL MEBUTATE
     Indication: ROSACEA

REACTIONS (8)
  - Application site erythema [Unknown]
  - Incorrect drug administration duration [None]
  - Application site swelling [Unknown]
  - Application site scab [Unknown]
  - Application site rash [Unknown]
  - Eye swelling [Unknown]
  - Inflammation [Unknown]
  - Product use issue [None]

NARRATIVE: CASE EVENT DATE: 20130520
